FAERS Safety Report 20376135 (Version 2)
Quarter: 2022Q1

REPORT INFORMATION
  Report Type: Report from Study
  Country: EG (occurrence: EG)
  Receive Date: 20220125
  Receipt Date: 20220330
  Transmission Date: 20220423
  Serious: Yes (Hospitalization, Other)
  Sender: FDA-Public Use
  Company Number: EG-NOVARTISPH-NVSC2021EG288351

PATIENT
  Age: 30 Year
  Sex: Female

DRUGS (8)
  1. COSENTYX [Suspect]
     Active Substance: SECUKINUMAB
     Indication: Psoriasis
     Dosage: 150 MG, TWICE A MONTH
     Route: 065
  2. COSENTYX [Suspect]
     Active Substance: SECUKINUMAB
     Dosage: 150 MG (TWICE MONTHLY FOR THE FIRST)
     Route: 065
     Dates: start: 20190205
  3. SALAZOPYRINE [Concomitant]
     Active Substance: SULFASALAZINE
     Indication: Arthritis
     Dosage: 1 DOSAGE FORM, QD (AT NIGHT)
     Route: 065
     Dates: start: 20211107, end: 20211107
  4. FEXOFENADINE [Concomitant]
     Active Substance: FEXOFENADINE HYDROCHLORIDE
     Indication: Hypersensitivity
     Dosage: 1 DOSAGE FORM, QD (BEFORE SLEEP)
     Route: 065
     Dates: start: 20211211
  5. SOLUPRED [Concomitant]
     Indication: Coronavirus infection
     Dosage: UNK
     Route: 065
     Dates: start: 20211113, end: 202112
  6. IVERZINE [Concomitant]
     Indication: Coronavirus infection
     Dosage: UNK
     Route: 065
     Dates: start: 20211113, end: 202112
  7. LINEZOLID [Concomitant]
     Active Substance: LINEZOLID
     Indication: Coronavirus infection
     Dosage: UNK
     Route: 065
     Dates: start: 20211113, end: 202112
  8. OMEGA 3 [Concomitant]
     Active Substance: CAPSAICIN
     Indication: Product used for unknown indication
     Dosage: 1 DOSAGE FORM, QD
     Route: 065
     Dates: start: 20190205

REACTIONS (31)
  - Arthritis [Recovering/Resolving]
  - Drug hypersensitivity [Recovering/Resolving]
  - Swelling [Recovering/Resolving]
  - Rash [Recovering/Resolving]
  - Injection site pain [Recovered/Resolved]
  - COVID-19 [Recovered/Resolved]
  - Syncope [Recovered/Resolved]
  - Pyrexia [Recovered/Resolved]
  - Pain [Recovered/Resolved]
  - Arthritis [Not Recovered/Not Resolved]
  - Temperature intolerance [Not Recovered/Not Resolved]
  - Joint stiffness [Not Recovered/Not Resolved]
  - Musculoskeletal stiffness [Not Recovered/Not Resolved]
  - Ageusia [Recovering/Resolving]
  - Anosmia [Recovering/Resolving]
  - Joint swelling [Not Recovered/Not Resolved]
  - Back pain [Recovered/Resolved]
  - Myalgia [Recovered/Resolved]
  - Arthralgia [Recovered/Resolved]
  - Bone pain [Recovered/Resolved]
  - Memory impairment [Recovered/Resolved]
  - Injection site pain [Recovered/Resolved]
  - Fatigue [Recovered/Resolved]
  - Pain in extremity [Recovered/Resolved]
  - Vitamin D deficiency [Recovered/Resolved]
  - Nasopharyngitis [Recovered/Resolved]
  - C-reactive protein increased [Unknown]
  - Product use issue [Unknown]
  - Off label use [Unknown]
  - Product dose omission issue [Recovered/Resolved]
  - Drug ineffective [Unknown]

NARRATIVE: CASE EVENT DATE: 20190205
